FAERS Safety Report 4575888-4 (Version None)
Quarter: 2005Q1

REPORT INFORMATION
  Report Type: 
  Country: None (occurrence: None)
  Receive Date: 20050207
  Receipt Date: 20041229
  Transmission Date: 20050727
  Serious: Yes (Hospitalization)
  Sender: FDA-Public Use
  Company Number: CIO04026867

PATIENT
  Age: 25 Year
  Sex: Male
  Weight: 90.7 kg

DRUGS (1)
  1. DAYQUIL COLD + FLU RELIEF(DEXTROMETHORPHAN HYDROBROMIDE 20 OR 30 MG, P [Suspect]
     Indication: NASOPHARYNGITIS
     Dosage: 2 DAYS, ORAL
     Route: 048
     Dates: start: 20041207, end: 20041208

REACTIONS (8)
  - CHEST PAIN [None]
  - DYSPNOEA [None]
  - EMPHYSEMA [None]
  - FOREIGN BODY TRAUMA [None]
  - PAIN [None]
  - PNEUMOMEDIASTINUM [None]
  - PULMONARY BULLA [None]
  - REVERSIBLE AIRWAYS OBSTRUCTION [None]
